FAERS Safety Report 20128775 (Version 1)
Quarter: 2021Q4

REPORT INFORMATION
  Report Type: Other
  Country: US (occurrence: None)
  Receive Date: 20211130
  Receipt Date: 20211130
  Transmission Date: 20220303
  Serious: Yes (Other)
  Sender: FDA-Public Use
  Company Number: US-ROCHE-2965054

PATIENT
  Sex: Female

DRUGS (8)
  1. OCREVUS [Suspect]
     Active Substance: OCRELIZUMAB
     Indication: Multiple sclerosis
     Dosage: NEXT INFUSION DUE 20/DEC/2021, 300MG FOR 2 WEEKS AND 600MG ON EVERY 6 MONTHS
     Route: 042
     Dates: start: 20201217
  2. OCREVUS [Suspect]
     Active Substance: OCRELIZUMAB
     Indication: Relapsing multiple sclerosis
  3. BACLOFEN [Suspect]
     Active Substance: BACLOFEN
     Indication: Muscle spasticity
     Route: 048
  4. HUMALOG [Concomitant]
     Active Substance: INSULIN LISPRO
     Indication: Type 1 diabetes mellitus
     Dosage: INSULIN PUMP
  5. LEXAPRO [Concomitant]
     Active Substance: ESCITALOPRAM OXALATE
     Indication: Anxiety
     Route: 048
     Dates: start: 2017
  6. LEXAPRO [Concomitant]
     Active Substance: ESCITALOPRAM OXALATE
     Indication: Perinatal depression
  7. OXYBUTYNIN [Concomitant]
     Active Substance: OXYBUTYNIN
     Indication: Urinary incontinence
  8. MODAFINIL [Concomitant]
     Active Substance: MODAFINIL
     Indication: Fatigue
     Dosage: BEGAN 2 YEARS AGO
     Route: 048

REACTIONS (9)
  - COVID-19 [Not Recovered/Not Resolved]
  - Therapeutic response decreased [Recovered/Resolved]
  - Toxicity to various agents [Recovered/Resolved]
  - Pyrexia [Unknown]
  - Fall [Unknown]
  - Contusion [Unknown]
  - Multiple sclerosis relapse [Not Recovered/Not Resolved]
  - Vomiting [Recovered/Resolved]
  - Fatigue [Recovered/Resolved]

NARRATIVE: CASE EVENT DATE: 20210101
